FAERS Safety Report 19817322 (Version 1)
Quarter: 2021Q3

REPORT INFORMATION
  Report Type: Spontaneous
  Country: US (occurrence: US)
  Receive Date: 20210910
  Receipt Date: 20210910
  Transmission Date: 20211014
  Serious: No
  Sender: FDA-Public Use
  Company Number: US-PAIPHARMA-2020-US-020503

PATIENT
  Age: 58 Year
  Sex: Male
  Weight: 63.5 kg

DRUGS (1)
  1. LACTULOSE SOLUTION USP, AF [Suspect]
     Active Substance: LACTULOSE
     Indication: PRODUCT USE IN UNAPPROVED INDICATION
     Dosage: PRN
     Route: 048
     Dates: start: 2010

REACTIONS (6)
  - Muscle spasms [Not Recovered/Not Resolved]
  - Product quality issue [Not Recovered/Not Resolved]
  - Intentional product misuse [Not Recovered/Not Resolved]
  - Diarrhoea [Not Recovered/Not Resolved]
  - Memory impairment [Not Recovered/Not Resolved]
  - Product storage error [Not Recovered/Not Resolved]

NARRATIVE: CASE EVENT DATE: 202007
